FAERS Safety Report 13294451 (Version 1)
Quarter: 2017Q1

REPORT INFORMATION
  Report Type: Report from Study
  Country: CA (occurrence: CA)
  Receive Date: 20170303
  Receipt Date: 20170303
  Transmission Date: 20170428
  Serious: Yes (Other)
  Sender: FDA-Public Use
  Company Number: CA-HLSUS-2016-CA-000615

PATIENT
  Age: 77 Year
  Sex: Male

DRUGS (3)
  1. CLOZARIL [Suspect]
     Active Substance: CLOZAPINE
     Indication: PARKINSON^S DISEASE PSYCHOSIS
     Route: 048
     Dates: start: 20160627, end: 20161014
  2. ALFUZOSIN [Concomitant]
     Active Substance: ALFUZOSIN
  3. SENOKOT [Concomitant]
     Active Substance: SENNOSIDES

REACTIONS (2)
  - Influenza [Unknown]
  - Pneumonia [Unknown]

NARRATIVE: CASE EVENT DATE: 20170112
